FAERS Safety Report 23111167 (Version 1)
Quarter: 2023Q4

REPORT INFORMATION
  Report Type: Spontaneous
  Country: IT (occurrence: IT)
  Receive Date: 20231026
  Receipt Date: 20231026
  Transmission Date: 20240110
  Serious: No
  Sender: FDA-Public Use
  Company Number: IT-JAZZ-2021-IT-003066

PATIENT
  Age: 50 Year
  Sex: Female

DRUGS (1)
  1. DEFITELIO [Suspect]
     Active Substance: DEFIBROTIDE SODIUM
     Indication: Transplant rejection
     Dosage: 6.25MG/KG EVERY 6H
     Route: 042
     Dates: start: 2020

REACTIONS (1)
  - Therapeutic response unexpected [Unknown]
